FAERS Safety Report 7750538-4 (Version None)
Quarter: 2011Q3

REPORT INFORMATION
  Report Type: 
  Country: None (occurrence: None)
  Receive Date: 20110914
  Receipt Date: 20110905
  Transmission Date: 20111222
  Serious: Yes (Hospitalization)
  Sender: FDA-Public Use
  Company Number: GB-JNJFOC-20110902508

PATIENT
  Sex: Female

DRUGS (17)
  1. REMICADE [Suspect]
     Route: 042
     Dates: start: 20080103
  2. REMICADE [Suspect]
     Route: 042
     Dates: start: 20070618
  3. REMICADE [Suspect]
     Route: 042
     Dates: start: 20080804
  4. REMICADE [Suspect]
     Route: 042
     Dates: start: 20071119
  5. REMICADE [Suspect]
     Route: 042
     Dates: start: 20080512
  6. REMICADE [Suspect]
     Route: 042
     Dates: start: 20080623
  7. REMICADE [Suspect]
     Indication: CROHN'S DISEASE
     Route: 042
     Dates: start: 20071008
  8. REMICADE [Suspect]
     Route: 042
     Dates: start: 20090323
  9. REMICADE [Suspect]
     Route: 042
     Dates: start: 20070828
  10. REMICADE [Suspect]
     Route: 042
     Dates: start: 20080331
  11. REMICADE [Suspect]
     Route: 042
     Dates: start: 20081006
  12. REMICADE [Suspect]
     Route: 042
     Dates: start: 20081201
  13. VITAMIN B-12 [Concomitant]
     Indication: CROHN'S DISEASE
     Dosage: FREQUENCY: 3/12
     Dates: start: 20040101
  14. REMICADE [Suspect]
     Route: 042
     Dates: start: 20080218
  15. SERTRALINE HYDROCHLORIDE [Concomitant]
     Indication: DEPRESSION
     Dates: start: 20040426
  16. REMICADE [Suspect]
     Route: 042
     Dates: start: 20090126
  17. REMICADE [Suspect]
     Route: 042
     Dates: start: 20090511

REACTIONS (3)
  - PROCTOCOLECTOMY [None]
  - TREATMENT FAILURE [None]
  - ILEOSTOMY [None]
